FAERS Safety Report 19511582 (Version 1)
Quarter: 2021Q3

REPORT INFORMATION
  Report Type: Other
  Country: CA (occurrence: CA)
  Receive Date: 20210709
  Receipt Date: 20210709
  Transmission Date: 20211014
  Serious: Yes (Hospitalization, Other)
  Sender: FDA-Public Use
  Company Number: CA-PFIZER INC-2021774774

PATIENT
  Age: 58 Year
  Sex: Female

DRUGS (10)
  1. FILGRASTIM [Suspect]
     Active Substance: FILGRASTIM
     Indication: NEUTROPENIA
     Route: 065
  2. CIDOFOVIR. [Concomitant]
     Active Substance: CIDOFOVIR
     Indication: VIRAL INFECTION
     Dosage: 1 MG/KG, 3 EVERY WEEK
     Route: 042
  3. MEROPENEM. [Concomitant]
     Active Substance: MEROPENEM
  4. VALGANCICLOVIR. [Concomitant]
     Active Substance: VALGANCICLOVIR
     Dosage: 450 MG, 1X/DAY
     Route: 048
  5. DARBEPOETIN ALFA [Suspect]
     Active Substance: DARBEPOETIN ALFA
     Indication: ANAEMIA
     Route: 065
  6. GANCICLOVIR. [Concomitant]
     Active Substance: GANCICLOVIR
     Dosage: 250 MG, 2X/DAY
     Route: 042
  7. PROBENECID. [Concomitant]
     Active Substance: PROBENECID
     Dosage: 2 G
     Route: 048
  8. PROBENECID. [Concomitant]
     Active Substance: PROBENECID
     Dosage: 2 G
     Route: 048
  9. IMMUNOGLOBULIN G HUMAN [Concomitant]
     Active Substance: HUMAN IMMUNOGLOBULIN G
     Indication: HYPOGAMMAGLOBULINAEMIA
  10. PROBENECID. [Concomitant]
     Active Substance: PROBENECID
     Dosage: 2 G
     Route: 048

REACTIONS (2)
  - Neutropenia [Recovered/Resolved]
  - Cytomegalovirus infection [Recovered/Resolved]
